FAERS Safety Report 6683566-0 (Version None)
Quarter: 2010Q2

REPORT INFORMATION
  Report Type: 
  Country: None (occurrence: None)
  Receive Date: 20100413
  Receipt Date: 20100329
  Transmission Date: 20101027
  Serious: Yes (Other)
  Sender: FDA-Public Use
  Company Number: 2010AL002037

PATIENT
  Age: 78 Year
  Sex: Male

DRUGS (2)
  1. GABAPENTIN [Suspect]
  2. REMICADE [Concomitant]

REACTIONS (4)
  - COGNITIVE DISORDER [None]
  - DRUG HYPERSENSITIVITY [None]
  - DRUG INTOLERANCE [None]
  - DRUG WITHDRAWAL SYNDROME [None]
